FAERS Safety Report 10595580 (Version 1)
Quarter: 2014Q4

REPORT INFORMATION
  Report Type: Report from Study
  Country: US (occurrence: US)
  Receive Date: 20141120
  Receipt Date: 20141120
  Transmission Date: 20150529
  Serious: No
  Sender: FDA-Public Use
  Company Number: US-009507513-1411USA005303

PATIENT
  Age: 70 Year
  Sex: Male

DRUGS (9)
  1. CALCIUM (UNSPECIFIED) [Concomitant]
     Active Substance: CALCIUM
     Indication: PRODUCT USED FOR UNKNOWN INDICATION
     Dosage: UNK
  2. CASODEX [Suspect]
     Active Substance: BICALUTAMIDE
     Indication: PROSTATIC SPECIFIC ANTIGEN INCREASED
     Dosage: UNK
     Route: 065
     Dates: end: 201409
  3. FLOMAX [Concomitant]
     Active Substance: TAMSULOSIN HYDROCHLORIDE
     Indication: PRODUCT USED FOR UNKNOWN INDICATION
  4. FOSAMAX [Concomitant]
     Active Substance: ALENDRONATE SODIUM
     Indication: PRODUCT USED FOR UNKNOWN INDICATION
     Dosage: UNK
     Route: 048
  5. AVODART [Concomitant]
     Active Substance: DUTASTERIDE
     Indication: PRODUCT USED FOR UNKNOWN INDICATION
     Dosage: UNK
  6. LUPRON DEPOT [Suspect]
     Active Substance: LEUPROLIDE ACETATE
     Indication: PROSTATE CANCER
     Dosage: 1 IN 3 M
     Dates: start: 201303, end: 201306
  7. LUPRON DEPOT [Suspect]
     Active Substance: LEUPROLIDE ACETATE
     Dosage: DAILY DOSE: 11.25 MG, 1 IN 3 M
     Dates: start: 2011, end: 20140206
  8. VITAMIN D [Concomitant]
     Active Substance: CHOLECALCIFEROL
     Indication: PRODUCT USED FOR UNKNOWN INDICATION
     Dosage: UNK
  9. PROSCAR [Suspect]
     Active Substance: FINASTERIDE
     Indication: PROSTATOMEGALY
     Dosage: UNKNOWN
     Route: 048
     Dates: start: 2008, end: 201409

REACTIONS (8)
  - Prostatic specific antigen increased [Not Recovered/Not Resolved]
  - Constipation [Unknown]
  - Back pain [Unknown]
  - Breast pain [Unknown]
  - Fatigue [Unknown]
  - Coccydynia [Unknown]
  - Prostatic specific antigen decreased [Recovered/Resolved]
  - Prostatic specific antigen decreased [Recovered/Resolved]

NARRATIVE: CASE EVENT DATE: 2013
